FAERS Safety Report 4715286-3 (Version None)
Quarter: 2005Q3

REPORT INFORMATION
  Report Type: 
  Country: None (occurrence: None)
  Receive Date: 20050715
  Receipt Date: 20050712
  Transmission Date: 20060218
  Serious: Yes (Disabling)
  Sender: FDA-Public Use
  Company Number: 200512349FR

PATIENT
  Age: 53 Year
  Sex: Female

DRUGS (2)
  1. FLAGYL [Suspect]
     Indication: DIARRHOEA
     Route: 048
     Dates: start: 20050701, end: 20050701
  2. FLAGYL [Suspect]
     Indication: DIVERTICULITIS
     Route: 048
     Dates: start: 20050701, end: 20050701

REACTIONS (3)
  - ARTHRALGIA [None]
  - DIFFICULTY IN WALKING [None]
  - NEUROPATHY PERIPHERAL [None]
